FAERS Safety Report 7293958-7 (Version None)
Quarter: 2011Q1

REPORT INFORMATION
  Report Type: 
  Country: None (occurrence: None)
  Receive Date: 20110215
  Receipt Date: 20110210
  Transmission Date: 20110831
  Serious: Yes (Hospitalization)
  Sender: FDA-Public Use
  Company Number: US-PFIZER INC-2010163115

PATIENT
  Sex: Female
  Weight: 68 kg

DRUGS (10)
  1. ALBUTEROL [Concomitant]
     Dosage: UNK
  2. CHANTIX [Suspect]
     Dosage: 1 MG, UNK
     Route: 048
  3. CHANTIX [Suspect]
     Indication: SMOKING CESSATION THERAPY
     Dosage: 0.5 MG, 1X/DAY
     Dates: start: 20101110
  4. ADVAIR [Concomitant]
     Dosage: UNK
  5. DEPAKOTE [Concomitant]
     Indication: CONVULSION
     Dosage: UNK
  6. CHANTIX [Suspect]
     Dosage: 0.5 MG, 2X/DAY
     Route: 048
     Dates: start: 20101101, end: 20101101
  7. VALIUM [Concomitant]
     Dosage: UNK, 3X/DAY
  8. LORATADINE [Concomitant]
     Dosage: UNK
  9. CELEXA [Concomitant]
     Dosage: UNK
  10. MONTELUKAST [Concomitant]
     Dosage: UNK

REACTIONS (4)
  - FEELING ABNORMAL [None]
  - HALLUCINATION [None]
  - ABNORMAL DREAMS [None]
  - INSOMNIA [None]
